FAERS Safety Report 8757057 (Version 1)
Quarter: 2012Q4

REPORT INFORMATION
  Report Type: 
  Country: US (occurrence: US)
  Receive Date: 20120828
  Receipt Date: 20120828
  Transmission Date: 20130627
  Serious: Yes (Death, Other)
  Sender: FDA-Public Use
  Company Number: US-PFIZER INC-2012205645

PATIENT
  Age: 25 Year
  Sex: Male
  Weight: 90.7 kg

DRUGS (1)
  1. GENOTROPIN [Suspect]
     Indication: PITUITARY TUMOUR
     Dosage: UNK

REACTIONS (2)
  - Death [Fatal]
  - Cerebral disorder [Unknown]
